FAERS Safety Report 25048571 (Version 1)
Quarter: 2025Q1

REPORT INFORMATION
  Report Type: Spontaneous
  Country: US (occurrence: US)
  Receive Date: 20250307
  Receipt Date: 20250307
  Transmission Date: 20250409
  Serious: Yes (Other)
  Sender: JOHNSON AND JOHNSON
  Company Number: US-JNJFOC-20250302981

PATIENT
  Age: 80 Year
  Sex: Female

DRUGS (1)
  1. TALVEY [Suspect]
     Active Substance: TALQUETAMAB-TGVS
     Indication: Plasma cell myeloma
     Dates: start: 20240723

REACTIONS (4)
  - Neurotoxicity [Recovered/Resolved]
  - Skin irritation [Recovering/Resolving]
  - Dysgeusia [Unknown]
  - Off label use [Unknown]
